FAERS Safety Report 4506592-6 (Version None)
Quarter: 2004Q4

REPORT INFORMATION
  Report Type: 
  Country: None (occurrence: None)
  Receive Date: 20041122
  Receipt Date: 20041110
  Transmission Date: 20050328
  Serious: Yes (Death, Hospitalization)
  Sender: FDA-Public Use
  Company Number: US-BRISTOL-MYERS SQUIBB COMPANY-12760724

PATIENT
  Age: 57 Year
  Sex: Male

DRUGS (2)
  1. DEFINITY [Suspect]
     Indication: LUNG DISORDER
     Route: 040
     Dates: start: 20041104, end: 20041104
  2. DEFINITY [Suspect]
     Indication: CARDIAC FAILURE CONGESTIVE
     Route: 040
     Dates: start: 20041104, end: 20041104

REACTIONS (3)
  - AGITATION [None]
  - DEATH [None]
  - DYSPNOEA [None]
